FAERS Safety Report 24567678 (Version 1)
Quarter: 2024Q4

REPORT INFORMATION
  Report Type: Spontaneous
  Country: IT (occurrence: IT)
  Receive Date: 20241031
  Receipt Date: 20241031
  Transmission Date: 20250114
  Serious: Yes (Other)
  Sender: ABBVIE
  Company Number: IT-ABBVIE-5981344

PATIENT
  Age: 86 Year
  Sex: Male
  Weight: 85 kg

DRUGS (2)
  1. SILODOSIN [Suspect]
     Active Substance: SILODOSIN
     Indication: Urinary bladder haemorrhage
     Route: 065
     Dates: start: 20240720
  2. AVODART [Suspect]
     Active Substance: DUTASTERIDE
     Indication: Blood urine present
     Route: 065
     Dates: start: 20240720

REACTIONS (1)
  - Leukocytosis [Not Recovered/Not Resolved]

NARRATIVE: CASE EVENT DATE: 20241004
